FAERS Safety Report 6967992-8 (Version None)
Quarter: 2010Q3

REPORT INFORMATION
  Report Type: 
  Country: None (occurrence: None)
  Receive Date: 20100907
  Receipt Date: 20100831
  Transmission Date: 20110219
  Serious: Yes (Other)
  Sender: FDA-Public Use
  Company Number: A0878675A

PATIENT
  Age: 49 Year
  Sex: Female

DRUGS (6)
  1. LOVAZA [Suspect]
     Dosage: 4G PER DAY
     Route: 048
     Dates: start: 20100501, end: 20100820
  2. SYNTHROID [Concomitant]
  3. CATAPRES [Concomitant]
  4. DIOVAN [Concomitant]
  5. METFORMIN [Concomitant]
  6. CALCIUM SUPPLEMENT [Concomitant]

REACTIONS (5)
  - CARDIAC FLUTTER [None]
  - COAGULATION TIME PROLONGED [None]
  - COAGULOPATHY [None]
  - DIZZINESS [None]
  - PALPITATIONS [None]
